FAERS Safety Report 20164455 (Version 1)
Quarter: 2021Q4

REPORT INFORMATION
  Report Type: Spontaneous
  Country: CN (occurrence: CN)
  Receive Date: 20211209
  Receipt Date: 20211209
  Transmission Date: 20220303
  Serious: Yes (Life-Threatening, Other)
  Sender: FDA-Public Use
  Company Number: CN-009507513-2112CHN001663

PATIENT
  Age: 82 Year
  Sex: Female
  Weight: 55 kg

DRUGS (2)
  1. CILASTATIN SODIUM\IMIPENEM [Suspect]
     Active Substance: CILASTATIN SODIUM\IMIPENEM
     Indication: Pneumonia
     Dosage: 0.5 GRAM, Q8H (ALSO REPORTED AS THREE TIME DAILY)
     Route: 041
     Dates: start: 20211120, end: 20211124
  2. SODIUM CHLORIDE [Concomitant]
     Active Substance: SODIUM CHLORIDE
     Indication: Medication dilution
     Dosage: 250 ML, Q8H (ALSO REPORTED AS THREE TIME DAILY)
     Route: 041
     Dates: start: 20211120, end: 20211124

REACTIONS (1)
  - Epilepsy [Recovering/Resolving]

NARRATIVE: CASE EVENT DATE: 20211124
